FAERS Safety Report 5994223-8 (Version None)
Quarter: 2008Q4

REPORT INFORMATION
  Report Type: 
  Country: None (occurrence: None)
  Receive Date: 20081212
  Receipt Date: 20080903
  Transmission Date: 20090506
  Serious: No
  Sender: FDA-Public Use
  Company Number: US-ABBOTT-08P-163-0474364-00

PATIENT
  Sex: Female

DRUGS (6)
  1. HUMIRA [Suspect]
     Indication: RHEUMATOID ARTHRITIS
     Route: 050
     Dates: start: 20050101
  2. HYDROXYCHLOROQUINE SULFATE [Concomitant]
     Indication: RHEUMATOID ARTHRITIS
     Dosage: 2 PILLS, DAILY
     Route: 048
     Dates: start: 20040101
  3. COMBAREN [Concomitant]
     Indication: RHEUMATOID ARTHRITIS
     Dosage: 2 PILLS, DAILY
     Route: 048
     Dates: start: 20040101
  4. SULFASALAZINE [Concomitant]
     Indication: RHEUMATOID ARTHRITIS
     Route: 048
     Dates: start: 20060101
  5. DEXTROPROPOXYPHENE [Concomitant]
     Indication: RHEUMATOID ARTHRITIS
     Dosage: 100/650MG, 3 TIMES DAILY
     Route: 048
     Dates: start: 20070101
  6. DEXTROPROPOXYPHENE [Concomitant]
     Indication: PAIN

REACTIONS (1)
  - NASOPHARYNGITIS [None]
